FAERS Safety Report 20052795 (Version 1)
Quarter: 2021Q4

REPORT INFORMATION
  Report Type: Spontaneous
  Country: CA (occurrence: CA)
  Receive Date: 20211110
  Receipt Date: 20211110
  Transmission Date: 20220304
  Serious: Yes (Other)
  Sender: FDA-Public Use
  Company Number: CA-TEVA-2021-CA-1974522

PATIENT
  Sex: Female

DRUGS (9)
  1. METHOTREXATE [Suspect]
     Active Substance: METHOTREXATE
     Indication: Product used for unknown indication
     Route: 065
  2. ENBREL [Suspect]
     Active Substance: ETANERCEPT
     Indication: Product used for unknown indication
     Route: 065
  3. HUMIRA [Suspect]
     Active Substance: ADALIMUMAB
     Indication: Rheumatoid arthritis
     Route: 058
  4. PENICILLIN G POTASSIUM\PENICILLIN G SODIUM [Suspect]
     Active Substance: PENICILLIN G POTASSIUM\PENICILLIN G SODIUM
     Indication: Product used for unknown indication
     Route: 065
  5. SIMPONI [Suspect]
     Active Substance: GOLIMUMAB
     Indication: Product used for unknown indication
     Route: 065
  6. CELEBREX [Concomitant]
     Active Substance: CELECOXIB
  7. HYDROXYCHLOROQUINE [Concomitant]
     Active Substance: HYDROXYCHLOROQUINE
  8. MORPHINE [Concomitant]
     Active Substance: MORPHINE
     Route: 065
  9. XELJANZ [Concomitant]
     Active Substance: TOFACITINIB CITRATE
     Indication: Rheumatoid arthritis
     Dosage: 10 MILLIGRAM DAILY;
     Route: 048

REACTIONS (15)
  - Chills [Unknown]
  - Colitis [Unknown]
  - Dermatitis allergic [Unknown]
  - Drug hypersensitivity [Unknown]
  - Drug hypersensitivity [Unknown]
  - Fatigue [Unknown]
  - Feeling hot [Unknown]
  - Headache [Unknown]
  - Injection site pain [Unknown]
  - Joint range of motion decreased [Unknown]
  - Joint swelling [Unknown]
  - Myalgia [Unknown]
  - Nausea [Unknown]
  - Osteoarthritis [Unknown]
  - Therapeutic product effect incomplete [Unknown]
